FAERS Safety Report 16474971 (Version 1)
Quarter: 2019Q2

REPORT INFORMATION
  Report Type: Spontaneous
  Country: FR (occurrence: FR)
  Receive Date: 20190625
  Receipt Date: 20190625
  Transmission Date: 20190711
  Serious: Yes (Other)
  Sender: FDA-Public Use
  Company Number: FR-009507513-1906FRA007045

PATIENT
  Age: 42 Year
  Sex: Male

DRUGS (1)
  1. CHIBRO-PROSCAR [Suspect]
     Active Substance: FINASTERIDE
     Indication: ALOPECIA
     Dosage: UNK
     Route: 048
     Dates: start: 199906

REACTIONS (5)
  - Arthralgia [Unknown]
  - Impaired work ability [Unknown]
  - Ankylosing spondylitis [Unknown]
  - Back pain [Unknown]
  - Pain in extremity [Unknown]

NARRATIVE: CASE EVENT DATE: 201901
